FAERS Safety Report 20902730 (Version 5)
Quarter: 2022Q4

REPORT INFORMATION
  Report Type: Report from Study
  Country: FR (occurrence: FR)
  Receive Date: 20220601
  Receipt Date: 20221221
  Transmission Date: 20230113
  Serious: Yes (Death, Disabling)
  Sender: FDA-Public Use
  Company Number: FR-ROCHE-3095154

PATIENT
  Age: 86 Year
  Sex: Male
  Weight: 61 kg

DRUGS (4)
  1. PACLITAXEL [Suspect]
     Active Substance: PACLITAXEL
     Indication: Neoplasm malignant
     Dosage: Q2W,ON 11/JAN/2022, MOST RECENT DOSE (150 MG)
     Route: 042
     Dates: start: 20211222, end: 20220112
  2. FLUOROURACIL [Suspect]
     Active Substance: FLUOROURACIL
     Indication: Neoplasm malignant
     Dosage: UNK
     Route: 065
     Dates: start: 20210113, end: 20210330
  3. OXALIPLATIN [Suspect]
     Active Substance: OXALIPLATIN
     Indication: Neoplasm malignant
     Dosage: UNK, Q2W
     Route: 042
     Dates: start: 20210113, end: 20210330
  4. FOLIC ACID [Suspect]
     Active Substance: FOLIC ACID
     Indication: Neoplasm malignant
     Dosage: UNK UNK, Q3W
     Route: 042
     Dates: start: 20210113, end: 20210330

REACTIONS (1)
  - General physical health deterioration [Fatal]

NARRATIVE: CASE EVENT DATE: 20220111
